FAERS Safety Report 8170697-1 (Version None)
Quarter: 2012Q1

REPORT INFORMATION
  Report Type: 
  Country: None (occurrence: None)
  Receive Date: 20120228
  Receipt Date: 20120217
  Transmission Date: 20120608
  Serious: Yes (Hospitalization, Other)
  Sender: FDA-Public Use
  Company Number: BE-ELI_LILLY_AND_COMPANY-BE201202005493

PATIENT
  Sex: Female

DRUGS (5)
  1. VITAMIN B-12 [Concomitant]
     Dosage: UNK, UNKNOWN
  2. ALIMTA [Suspect]
     Indication: NON-SMALL CELL LUNG CANCER STAGE IIIA
     Dosage: UNK, UNKNOWN
  3. CISPLATIN [Concomitant]
     Dosage: UNK, UNKNOWN
  4. FOLIC ACID [Concomitant]
     Dosage: UNK, UNKNOWN
  5. DEXAMETHASONE [Concomitant]
     Dosage: UNK, UNKNOWN

REACTIONS (4)
  - THROMBOCYTOPENIA [None]
  - NEUTROPENIA [None]
  - ASPERGILLOSIS [None]
  - RENAL FAILURE [None]
